FAERS Safety Report 8193888-2 (Version None)
Quarter: 2012Q1

REPORT INFORMATION
  Report Type: 
  Country: None (occurrence: None)
  Receive Date: 20120308
  Receipt Date: 20120229
  Transmission Date: 20120608
  Serious: Yes (Death, Hospitalization)
  Sender: FDA-Public Use
  Company Number: MX-BRISTOL-MYERS SQUIBB COMPANY-16429409

PATIENT
  Age: 68 Year
  Sex: Female

DRUGS (4)
  1. LANTUS [Suspect]
     Indication: TYPE 2 DIABETES MELLITUS
     Route: 048
     Dates: start: 20070101, end: 20120208
  2. IRBESARTAN AND HYDROCHLOROTHIAZIDE [Suspect]
     Indication: HYPERTENSION
     Dosage: 1 DF: 1 TABLET
     Route: 048
     Dates: start: 20050101, end: 20120208
  3. ADALAT [Concomitant]
     Indication: HYPERTENSION
     Route: 048
     Dates: start: 20030101, end: 20120208
  4. LEVOTHYROXINE SODIUM [Concomitant]
     Indication: HYPOTHYROIDISM
     Route: 048
     Dates: start: 19980101, end: 20120208

REACTIONS (5)
  - SEPTIC SHOCK [None]
  - DEVICE RELATED INFECTION [None]
  - RESPIRATORY FAILURE [None]
  - PNEUMONIA BACTERIAL [None]
  - RENAL FAILURE CHRONIC [None]
